FAERS Safety Report 15247053 (Version 1)
Quarter: 2018Q3

REPORT INFORMATION
  Report Type: Spontaneous
  Country: US (occurrence: US)
  Receive Date: 20180807
  Receipt Date: 20180807
  Transmission Date: 20181010
  Serious: No
  Sender: FDA-Public Use
  Company Number: US-ABBVIE-18S-163-2338393-00

PATIENT
  Sex: Female

DRUGS (2)
  1. DEPAKOTE [Suspect]
     Active Substance: DIVALPROEX SODIUM
     Indication: PRODUCT USED FOR UNKNOWN INDICATION
     Route: 065
  2. LAMOTRIGINE. [Suspect]
     Active Substance: LAMOTRIGINE
     Indication: PRODUCT USED FOR UNKNOWN INDICATION
     Route: 065

REACTIONS (9)
  - Nightmare [Unknown]
  - Mood altered [Unknown]
  - Obsessive thoughts [Unknown]
  - Insomnia [Unknown]
  - Anxiety [Unknown]
  - Anger [Unknown]
  - Irritability [Unknown]
  - Abnormal dreams [Unknown]
  - Paranoia [Unknown]
